FAERS Safety Report 9773333 (Version 1)
Quarter: 2013Q4

REPORT INFORMATION
  Report Type: Spontaneous
  Country: FR (occurrence: None)
  Receive Date: 20131217
  Receipt Date: 20131217
  Transmission Date: 20140711
  Serious: Yes (Hospitalization)
  Sender: FDA-Public Use
  Company Number: 1933311

PATIENT
  Age: 67 Year
  Sex: Female

DRUGS (6)
  1. CARBOPLATIN [Suspect]
     Indication: BREAST CANCER
     Route: 042
     Dates: start: 20111128, end: 20111128
  2. PACLITAXEL EDEWE [Concomitant]
  3. POLARAMINE [Concomitant]
  4. METHYLPREDNISOLONE MERCK [Concomitant]
  5. ZOPHREN [Concomitant]
  6. AZANTAC [Concomitant]

REACTIONS (4)
  - Oxygen saturation decreased [None]
  - Dyspnoea [None]
  - Malaise [None]
  - Erythema [None]
